FAERS Safety Report 9886615 (Version 2)
Quarter: 2014Q2

REPORT INFORMATION
  Report Type: Spontaneous
  Country: GB (occurrence: GB)
  Receive Date: 20140210
  Receipt Date: 20140417
  Transmission Date: 20141212
  Serious: Yes (Other)
  Sender: FDA-Public Use
  Company Number: GB-WATSON-2014-01962

PATIENT
  Sex: Male

DRUGS (1)
  1. RISPERIDONE (UNKNOWN) [Suspect]
     Indication: SCHIZOPHRENIA
     Dosage: UNK
     Route: 030

REACTIONS (4)
  - Rash pustular [Unknown]
  - Headache [Unknown]
  - Burning sensation [Unknown]
  - Musculoskeletal stiffness [Unknown]
